FAERS Safety Report 5643975-5 (Version None)
Quarter: 2008Q1

REPORT INFORMATION
  Report Type: 
  Country: None (occurrence: None)
  Receive Date: 20080131
  Receipt Date: 20071221
  Transmission Date: 20080703
  Serious: Yes (Hospitalization)
  Sender: FDA-Public Use
  Company Number: 163-21880-07121262

PATIENT
  Age: 45 Year
  Sex: Female
  Weight: 33.793 kg

DRUGS (2)
  1. REVLIMID [Suspect]
     Indication: MULTIPLE MYELOMA
     Dosage: 25 MG, QD ON DAYS 1-21 EVERY 28 DAYS, ORAL
     Route: 048
     Dates: start: 20060224, end: 20061218
  2. DEXAMETHASONE TAB [Suspect]
     Indication: MULTIPLE MYELOMA
     Dosage: 40 MG, QD ON DAYS  1-4, 9-12, 17-28 Q28D, ORAL
     Route: 048
     Dates: start: 20060224, end: 20061129

REACTIONS (1)
  - THROMBOSIS [None]
